FAERS Safety Report 6173792-1 (Version None)
Quarter: 2009Q2

REPORT INFORMATION
  Report Type: 
  Country: None (occurrence: None)
  Receive Date: 20090430
  Receipt Date: 20090420
  Transmission Date: 20091009
  Serious: Yes (Hospitalization)
  Sender: FDA-Public Use
  Company Number: HK-AMGEN-US344579

PATIENT
  Sex: Female

DRUGS (12)
  1. ARANESP [Suspect]
     Indication: RENAL FAILURE CHRONIC
     Route: 058
     Dates: start: 20080429, end: 20090224
  2. ZOCOR [Suspect]
     Route: 048
     Dates: start: 20061024
  3. SODIUM BICARBONATE [Concomitant]
     Route: 048
     Dates: start: 20070502
  4. METOPROLOL TARTRATE [Concomitant]
     Route: 048
     Dates: start: 20060726
  5. PRAZOSIN HCL [Concomitant]
     Route: 048
     Dates: start: 20070913
  6. FERROUS SULFATE TAB [Concomitant]
     Route: 048
     Dates: start: 20080429
  7. POTASSIUM CHLORIDE [Concomitant]
     Dates: start: 20081225
  8. ASPIRIN [Concomitant]
     Route: 048
     Dates: start: 20080318
  9. CALCIUM CARBONATE [Concomitant]
     Route: 048
     Dates: start: 20080116
  10. FAMOTIDINE [Concomitant]
     Route: 048
     Dates: start: 20080318
  11. ADALAT [Concomitant]
     Route: 048
  12. PREDNISOLONE [Concomitant]
     Dates: start: 20090101

REACTIONS (1)
  - COAGULATION FACTOR VII LEVEL DECREASED [None]
